FAERS Safety Report 14491005 (Version 4)
Quarter: 2018Q2

REPORT INFORMATION
  Report Type: Spontaneous
  Country: US (occurrence: US)
  Receive Date: 20180206
  Receipt Date: 20180615
  Transmission Date: 20180711
  Serious: No
  Sender: FDA-Public Use
  Company Number: US-PFIZER INC-2018051065

PATIENT
  Age: 87 Year
  Sex: Female
  Weight: 79.81 kg

DRUGS (3)
  1. IBRANCE [Suspect]
     Active Substance: PALBOCICLIB
     Dosage: 75 MG, CYCLIC (D1-21Q 28 DAYS)
     Route: 048
     Dates: start: 20180122
  2. IBRANCE [Suspect]
     Active Substance: PALBOCICLIB
     Dosage: 100 MG, CYCLIC (D1-21 Q28DAYS)
     Route: 048
     Dates: start: 20180120, end: 201806
  3. IBRANCE [Suspect]
     Active Substance: PALBOCICLIB
     Indication: BREAST CANCER METASTATIC
     Dosage: 75MG, CYCLIC (D1-21 Q 28 DAYS)
     Route: 048
     Dates: start: 20180120

REACTIONS (3)
  - Nausea [Recovering/Resolving]
  - Neoplasm progression [Unknown]
  - Chest pain [Recovered/Resolved]

NARRATIVE: CASE EVENT DATE: 2018
